FAERS Safety Report 13552552 (Version 1)
Quarter: 2017Q2

REPORT INFORMATION
  Report Type: Report from Study
  Country: US (occurrence: US)
  Receive Date: 20170517
  Receipt Date: 20170517
  Transmission Date: 20170830
  Serious: Yes (Other)
  Sender: FDA-Public Use
  Company Number: US-BRISTOL-MYERS SQUIBB COMPANY-BMS-2017-040984

PATIENT
  Age: 71 Year
  Sex: Female

DRUGS (2)
  1. BEVACIZUMAB [Suspect]
     Active Substance: BEVACIZUMAB
     Indication: MALIGNANT MELANOMA
     Dosage: 1290 MG, UNK
     Route: 042
     Dates: start: 20150410, end: 20160717
  2. IPILIMUMAB [Suspect]
     Active Substance: IPILIMUMAB
     Indication: MALIGNANT MELANOMA
     Dosage: 258 MG, UNK
     Route: 042
     Dates: start: 20150410, end: 20160717

REACTIONS (7)
  - Diarrhoea [Unknown]
  - Colitis [Unknown]
  - Large intestine perforation [Unknown]
  - Embolism [Unknown]
  - Cough [Unknown]
  - Hypertension [Unknown]
  - Skin ulcer [Unknown]

NARRATIVE: CASE EVENT DATE: 20150522
